FAERS Safety Report 8689770 (Version 2)
Quarter: 2012Q4

REPORT INFORMATION
  Report Type: 
  Country: US (occurrence: US)
  Receive Date: 20120727
  Receipt Date: 20121121
  Transmission Date: 20130627
  Serious: No
  Sender: FDA-Public Use
  Company Number: US-ASTRAZENECA-2012SE09170

PATIENT
  Age: 38 Year
  Sex: Female

DRUGS (3)
  1. SEROQUEL [Suspect]
     Indication: SPEECH DISORDER
     Route: 048
  2. SEROQUEL [Suspect]
     Indication: SPEECH DISORDER
     Route: 048
  3. SEROQUEL [Suspect]
     Indication: SPEECH DISORDER
     Route: 048

REACTIONS (4)
  - Bipolar disorder [Unknown]
  - Exposure during pregnancy [Unknown]
  - Off label use [Unknown]
  - Off label use [Unknown]
